FAERS Safety Report 8203512-8 (Version None)
Quarter: 2012Q1

REPORT INFORMATION
  Report Type: 
  Country: None (occurrence: None)
  Receive Date: 20120313
  Receipt Date: 20120306
  Transmission Date: 20120608
  Serious: No
  Sender: FDA-Public Use
  Company Number: US-BIOGENIDEC-2012BI001850

PATIENT
  Sex: Female

DRUGS (7)
  1. AVONEX [Concomitant]
     Indication: MULTIPLE SCLEROSIS
     Route: 030
     Dates: start: 20021115, end: 20031103
  2. TYSABRI [Suspect]
     Route: 042
     Dates: start: 20110307, end: 20120206
  3. AVONEX [Concomitant]
     Route: 030
     Dates: start: 20090321, end: 20100401
  4. TYSABRI [Suspect]
     Indication: MULTIPLE SCLEROSIS
     Route: 042
     Dates: start: 20100405, end: 20100405
  5. AVONEX [Concomitant]
     Route: 030
     Dates: start: 20100601, end: 20100610
  6. AVONEX [Concomitant]
     Route: 030
     Dates: start: 20041006
  7. AVONEX [Concomitant]
     Route: 030
     Dates: end: 20070905

REACTIONS (5)
  - PAIN [None]
  - MUSCLE ATROPHY [None]
  - MEMORY IMPAIRMENT [None]
  - COGNITIVE DISORDER [None]
  - ABDOMINAL PAIN UPPER [None]
